FAERS Safety Report 4402034-X (Version None)
Quarter: 2004Q3

REPORT INFORMATION
  Report Type: 
  Country: None (occurrence: None)
  Receive Date: 20040719
  Receipt Date: 20040719
  Transmission Date: 20050211
  Serious: Yes (Life-Threatening, Disabling)
  Sender: FDA-Public Use
  Company Number: None

PATIENT
  Age: 54 Year
  Sex: Male
  Weight: 136.0791 kg

DRUGS (1)
  1. ZOLOFT [Suspect]
     Dosage: 200 MG
     Dates: start: 19920301, end: 20040716

REACTIONS (7)
  - APATHY [None]
  - DEPRESSION [None]
  - FEELING ABNORMAL [None]
  - HYPERSOMNIA [None]
  - LETHARGY [None]
  - OVERDOSE [None]
  - SUICIDE ATTEMPT [None]
